FAERS Safety Report 23593161 (Version 1)
Quarter: 2024Q1

REPORT INFORMATION
  Report Type: Spontaneous
  Country: FR (occurrence: FR)
  Receive Date: 20240304
  Receipt Date: 20240304
  Transmission Date: 20240410
  Serious: Yes (Hospitalization, Other)
  Sender: FDA-Public Use
  Company Number: None

PATIENT
  Age: 67 Year
  Sex: Female
  Weight: 52 kg

DRUGS (14)
  1. LINEZOLID [Suspect]
     Active Substance: LINEZOLID
     Indication: Device related infection
     Dosage: 600 MG, 2X/DAY
     Route: 048
     Dates: start: 202311, end: 20240126
  2. LINEZOLID [Suspect]
     Active Substance: LINEZOLID
     Indication: Enterococcal infection
  3. AMOXICILLIN [Suspect]
     Active Substance: AMOXICILLIN
     Indication: Device related infection
     Dosage: 2 G, 3X/DAY
     Route: 048
     Dates: start: 202311, end: 20240126
  4. CALCIFORTE VITAMINE D3 [Concomitant]
     Indication: Osteoporosis
     Dosage: 1 DF, 1X/DAY
     Route: 048
  5. NICARDIPINE HYDROCHLORIDE [Concomitant]
     Active Substance: NICARDIPINE HYDROCHLORIDE
     Indication: Hypertension
     Dosage: 20 MG, 1X/DAY
     Route: 048
  6. KARDEGIC [Concomitant]
     Active Substance: ASPIRIN DL-LYSINE
     Indication: Cardiovascular event prophylaxis
     Dosage: 1 SACHET, 1X/DAY
     Route: 048
  7. CANDESARTAN CILEXETIL [Concomitant]
     Active Substance: CANDESARTAN CILEXETIL
     Indication: Hypertension
     Dosage: 4 MG, 1X/DAY
     Route: 048
  8. LIPTRUZET [Concomitant]
     Active Substance: ATORVASTATIN CALCIUM\EZETIMIBE
     Indication: Dyslipidaemia
     Dosage: 1 DF, 1X/DAY
     Route: 048
  9. QUETIAPINE FUMARATE [Concomitant]
     Active Substance: QUETIAPINE FUMARATE
     Indication: Depression
     Dosage: 1 DF, 2X/DAY IN THE EVENING AND AT BEDTIME
     Route: 048
  10. LUMIGAN [Concomitant]
     Active Substance: BIMATOPROST
     Indication: Glaucoma
     Dosage: 1 DF, 1X/DAY
     Route: 031
  11. BROMAZEPAM [Concomitant]
     Active Substance: BROMAZEPAM
     Indication: Depression
     Dosage: 1 DF, 1X/DAY (1/4-1/4-1/2)
     Route: 048
  12. PAROXETINE HYDROCHLORIDE [Concomitant]
     Active Substance: PAROXETINE HYDROCHLORIDE\PAROXETINE HYDROCHLORIDE ANHYDROUS
     Indication: Depression
     Dosage: 1 DF, 1X/DAY IN THE MORNING
     Route: 048
  13. PANTOPRAZOLE [Concomitant]
     Active Substance: PANTOPRAZOLE
     Indication: Gastritis prophylaxis
     Dosage: 1 DF, 1X/DAY
     Route: 048
  14. TRELEGY ELLIPTA [Concomitant]
     Active Substance: FLUTICASONE FUROATE\UMECLIDINIUM BROMIDE\VILANTEROL TRIFENATATE
     Indication: Chronic obstructive pulmonary disease
     Dosage: 1 DF, 1X/DAY
     Route: 055

REACTIONS (6)
  - Aplastic anaemia [Recovered/Resolved]
  - Dyspnoea [Recovering/Resolving]
  - Visual acuity reduced [Not Recovered/Not Resolved]
  - Neuropathy peripheral [Recovering/Resolving]
  - Off label use [Unknown]
  - Product use issue [Unknown]

NARRATIVE: CASE EVENT DATE: 20231101
